FAERS Safety Report 20614867 (Version 1)
Quarter: 2022Q1

REPORT INFORMATION
  Report Type: Spontaneous
  Country: US (occurrence: US)
  Receive Date: 20220321
  Receipt Date: 20220321
  Transmission Date: 20220423
  Serious: Yes (Hospitalization, Other)
  Sender: FDA-Public Use
  Company Number: US-SA-2022SA080293

PATIENT
  Age: 75 Year
  Sex: Female
  Weight: 73 kg

DRUGS (9)
  1. FLUOROURACIL [Suspect]
     Active Substance: FLUOROURACIL
  2. BUDIGALIMAB [Suspect]
     Active Substance: BUDIGALIMAB
     Indication: Pancreatic carcinoma metastatic
     Dosage: 500 MG, Q3D
     Route: 042
     Dates: start: 20220211, end: 20220211
  3. OXALIPLATIN [Suspect]
     Active Substance: OXALIPLATIN
     Indication: Pancreatic carcinoma metastatic
     Dosage: 159.8 MG, BIM
     Route: 042
     Dates: start: 20220209, end: 20220209
  4. LEUCOVORIN [Suspect]
     Active Substance: LEUCOVORIN
     Indication: Pancreatic carcinoma metastatic
     Dosage: 752 MG, BIM
     Route: 042
     Dates: start: 20220209, end: 20220209
  5. IRINOTECAN [Suspect]
     Active Substance: IRINOTECAN
     Indication: Pancreatic carcinoma metastatic
     Dosage: 282 MG, BIM
     Route: 042
     Dates: start: 20220209, end: 20220209
  6. POTASSIUM CHLORIDE [Concomitant]
     Active Substance: POTASSIUM CHLORIDE
     Indication: Hypokalaemia
     Dosage: 20 MEQ, QD
     Route: 048
     Dates: start: 20220207
  7. ACETAMINOPHEN [Concomitant]
     Active Substance: ACETAMINOPHEN
     Indication: Abdominal pain
     Dosage: 1000 MG, PRN
     Route: 048
     Dates: start: 20210801
  8. ONDANSETRON [Concomitant]
     Active Substance: ONDANSETRON
     Indication: Nausea
     Dosage: 8 MG,1 IN 1 AS REQUIRED
     Route: 048
     Dates: start: 20211227
  9. PROCHLORPERAZINE [Concomitant]
     Active Substance: PROCHLORPERAZINE
     Indication: Nausea
     Dosage: 10 MG,1 IN 1 AS REQUIRED
     Dates: start: 20211227

REACTIONS (5)
  - Bacteraemia [Not Recovered/Not Resolved]
  - Back pain [Not Recovered/Not Resolved]
  - Fatigue [Recovered/Resolved]
  - Malaise [Recovered/Resolved]
  - Decreased appetite [Recovered/Resolved]

NARRATIVE: CASE EVENT DATE: 20220210
